FAERS Safety Report 10654147 (Version 2)
Quarter: 2015Q1

REPORT INFORMATION
  Report Type: Spontaneous
  Country: IT (occurrence: IT)
  Receive Date: 20141216
  Receipt Date: 20150226
  Transmission Date: 20150720
  Serious: Yes (Hospitalization)
  Sender: FDA-Public Use
  Company Number: IT-NOVOPROD-431706

PATIENT
  Age: 85 Year
  Sex: Male

DRUGS (6)
  1. PERIDON                            /00498201/ [Concomitant]
     Dosage: UNK
     Route: 065
  2. NOVONORM [Suspect]
     Active Substance: REPAGLINIDE
     Indication: DIABETES MELLITUS
     Dosage: 3 TAB, QD (0.5 MG)
     Route: 065
     Dates: start: 20090701, end: 20141204
  3. CASODEX [Concomitant]
     Active Substance: BICALUTAMIDE
     Dosage: UNK
     Route: 065
  4. SPIRIVA [Concomitant]
     Active Substance: TIOTROPIUM BROMIDE MONOHYDRATE
     Dosage: UNK
     Route: 065
  5. EN [Concomitant]
     Active Substance: DELORAZEPAM
     Dosage: UNK
     Route: 065
  6. OMEPRAZOLE. [Concomitant]
     Active Substance: OMEPRAZOLE
     Dosage: UNK
     Route: 065

REACTIONS (1)
  - Hypoglycaemic coma [Recovered/Resolved]

NARRATIVE: CASE EVENT DATE: 20141204
